FAERS Safety Report 7670975-6 (Version None)
Quarter: 2011Q3

REPORT INFORMATION
  Report Type: 
  Country: None (occurrence: None)
  Receive Date: 20110805
  Receipt Date: 20110805
  Transmission Date: 20111222
  Serious: Yes (Hospitalization)
  Sender: FDA-Public Use
  Company Number: None

PATIENT
  Sex: Female
  Weight: 103 kg

DRUGS (6)
  1. FENTANYL-100 [Concomitant]
  2. TAXOL [Suspect]
     Dosage: 350 MG
  3. BENZODIAZEPINES [Concomitant]
  4. DILAUDID [Concomitant]
  5. CARBOPLATIN [Suspect]
     Dosage: 672 MG
  6. MORPHINE SULFATE [Concomitant]

REACTIONS (23)
  - HALLUCINATIONS, MIXED [None]
  - METASTASES TO ABDOMINAL CAVITY [None]
  - CONFUSIONAL STATE [None]
  - NEOPLASM PROGRESSION [None]
  - HYDRONEPHROSIS [None]
  - DIARRHOEA [None]
  - DELIRIUM [None]
  - METABOLIC ENCEPHALOPATHY [None]
  - MENTAL IMPAIRMENT [None]
  - METASTASES TO PELVIS [None]
  - ASCITES [None]
  - ANAEMIA [None]
  - VOMITING [None]
  - NAUSEA [None]
  - METASTASES TO LARGE INTESTINE [None]
  - ABDOMINAL PAIN UPPER [None]
  - CONSTIPATION [None]
  - COUGH [None]
  - HYDROURETER [None]
  - AGGRESSION [None]
  - METASTASES TO SMALL INTESTINE [None]
  - INADEQUATE ANALGESIA [None]
  - HYPOXIC-ISCHAEMIC ENCEPHALOPATHY [None]
